FAERS Safety Report 14823042 (Version 1)
Quarter: 2018Q2

REPORT INFORMATION
  Report Type: Spontaneous
  Country: DE (occurrence: DE)
  Receive Date: 20180427
  Receipt Date: 20180427
  Transmission Date: 20180711
  Serious: Yes (Hospitalization)
  Sender: FDA-Public Use
  Company Number: DE-009507513-1804DEU010521

PATIENT
  Age: 78 Year
  Sex: Female
  Weight: 65 kg

DRUGS (20)
  1. PREGABALIN. [Concomitant]
     Active Substance: PREGABALIN
     Dosage: 50 MG, 2-0-2-0
     Route: 048
  2. PANTOPRAZOLE [Concomitant]
     Active Substance: PANTOPRAZOLE
     Dosage: 40 MG, 0-0-1-0
     Route: 048
  3. HYDROCHLOROTHIAZIDE. [Suspect]
     Active Substance: HYDROCHLOROTHIAZIDE
     Dosage: 12.5 MG, 1-0-0-0
     Route: 048
  4. BISOPROLOL [Suspect]
     Active Substance: BISOPROLOL
     Dosage: 5 MG, 1-0-1-0
     Route: 048
  5. RAMIPRIL. [Suspect]
     Active Substance: RAMIPRIL
     Dosage: 2.5 MG, 1-0-0-0
     Route: 048
  6. MOVICOL [Suspect]
     Active Substance: POLYETHYLENE GLYCOL 3350\POTASSIUM CHLORIDE\SODIUM BICARBONATE\SODIUM CHLORIDE
     Dosage: 1-0-0-0
     Route: 048
  7. REMERGIL [Suspect]
     Active Substance: MIRTAZAPINE
     Dosage: 15 MG, 0-0-1-0
     Route: 048
  8. L-THYROXIN [Suspect]
     Active Substance: LEVOTHYROXINE SODIUM
     Dosage: 200 MG, 1-0-0-0
     Route: 048
  9. ALDACTONE [Suspect]
     Active Substance: SPIRONOLACTONE
     Dosage: 50 MG, 1-0-0-0
     Route: 048
  10. XARELTO [Concomitant]
     Active Substance: RIVAROXABAN
     Dosage: 20 MG, 1-0-0-0
     Route: 048
  11. SIMVASTATIN. [Concomitant]
     Active Substance: SIMVASTATIN
     Dosage: 40 MG, 0-0-1-0
     Route: 048
  12. DIGIMERCK [Suspect]
     Active Substance: DIGITOXIN
     Dosage: 0.1 MG, 1-0-0-0
     Route: 048
  13. TRAMAL [Concomitant]
     Active Substance: TRAMADOL
     Dosage: 20 DROPS, 1-0-1-0
  14. NOVALGIN (DIPYRONE) [Concomitant]
     Active Substance: DIPYRONE
     Dosage: 500 MG, 1-1-1-0
     Route: 048
  15. VOMACUR [Suspect]
     Active Substance: DIMENHYDRINATE
     Dosage: 50 MG, BEDARF ; AS NECESSARY
     Route: 048
  16. SERTRALINE HYDROCHLORIDE. [Concomitant]
     Active Substance: SERTRALINE HYDROCHLORIDE
     Dosage: 100 MG, 1-0-0-0
     Route: 048
  17. MELPERONE [Concomitant]
     Active Substance: MELPERONE
     Dosage: 25 MG; AS NECESSARY
     Route: 048
  18. TOREM [Suspect]
     Active Substance: TORSEMIDE
     Dosage: 10 MG, 2-2-0-0
     Route: 048
  19. RELVAR ELLIPTA [Concomitant]
     Active Substance: FLUTICASONE FUROATE\VILANTEROL TRIFENATATE
     Dosage: 184|22 ?G, 1-0-0-0
     Route: 055
  20. CALCIUM D3 [Concomitant]
     Active Substance: CALCIUM\CHOLECALCIFEROL
     Dosage: 0-1-0-0
     Route: 048

REACTIONS (2)
  - Dyspnoea [Unknown]
  - Atrial fibrillation [Unknown]
